FAERS Safety Report 12371926 (Version 2)
Quarter: 2016Q2

REPORT INFORMATION
  Report Type: Other
  Country: IT (occurrence: IT)
  Receive Date: 20160516
  Receipt Date: 20160617
  Transmission Date: 20160815
  Serious: Yes (Death, Hospitalization)
  Sender: FDA-Public Use
  Company Number: IT-ASTELLAS-2016US019026

PATIENT
  Age: 72 Year
  Sex: Male

DRUGS (1)
  1. ERLOTINIB [Suspect]
     Active Substance: ERLOTINIB
     Indication: LUNG NEOPLASM MALIGNANT
     Dosage: 150 MG, ONCE DAILY (30X150 MG FILM-COATED TABLETS IN PVC/AL BLISTER)
     Route: 048
     Dates: start: 20160311, end: 20160404

REACTIONS (3)
  - Leukopenia [Fatal]
  - Pneumonitis [Fatal]
  - Neutropenia [Fatal]

NARRATIVE: CASE EVENT DATE: 20160404
